FAERS Safety Report 14163294 (Version 1)
Quarter: 2017Q4

REPORT INFORMATION
  Report Type: Spontaneous
  Country: US (occurrence: US)
  Receive Date: 20171106
  Receipt Date: 20171106
  Transmission Date: 20180321
  Serious: Yes (Hospitalization, Other)
  Sender: FDA-Public Use
  Company Number: US-ZYDUS-017492

PATIENT
  Age: 64 Year
  Sex: Female

DRUGS (3)
  1. CARBOPLATIN. [Concomitant]
     Active Substance: CARBOPLATIN
     Indication: CHEMOTHERAPY
     Route: 065
  2. ETOPOSIDE. [Concomitant]
     Active Substance: ETOPOSIDE
     Indication: CHEMOTHERAPY
     Route: 065
  3. OXYCODONE [Suspect]
     Active Substance: OXYCODONE
     Indication: BACK PAIN
     Route: 065

REACTIONS (12)
  - Megacolon [Unknown]
  - Colitis [Unknown]
  - Nausea [Unknown]
  - Faecaloma [Unknown]
  - Leukocytosis [Unknown]
  - Serositis [Unknown]
  - Asthenia [Unknown]
  - Constipation [Unknown]
  - Large intestine perforation [Unknown]
  - Abdominal pain [Unknown]
  - Rectal ulcer [Unknown]
  - Retroperitoneal abscess [Unknown]
